FAERS Safety Report 5796605-6 (Version None)
Quarter: 2008Q3

REPORT INFORMATION
  Report Type: 
  Country: None (occurrence: None)
  Receive Date: 20080701
  Receipt Date: 20080624
  Transmission Date: 20090109
  Serious: Yes (Other)
  Sender: FDA-Public Use
  Company Number: SY-JNJFOC-20080605876

PATIENT
  Age: 48 Year
  Sex: Male
  Weight: 60 kg

DRUGS (3)
  1. REMICADE [Suspect]
     Route: 042
  2. REMICADE [Suspect]
     Indication: COLITIS ULCERATIVE
     Route: 042
  3. REMICADE [Suspect]
     Indication: INFLAMMATORY BOWEL DISEASE
     Route: 042

REACTIONS (1)
  - HYPERTHYROIDISM [None]
